FAERS Safety Report 9387744 (Version 1)
Quarter: 2013Q3

REPORT INFORMATION
  Report Type: Spontaneous
  Country: CH (occurrence: None)
  Receive Date: 20130703
  Receipt Date: 20130703
  Transmission Date: 20140515
  Serious: Yes (Hospitalization)
  Sender: FDA-Public Use
  Company Number: 2013189725

PATIENT
  Age: 53 Year
  Sex: Male

DRUGS (4)
  1. FRAGMIN (DALTEPARIN SODIUM) SOLUTION FOR INJECTION [Suspect]
     Dates: start: 20130410, end: 20130411
  2. MICARDIS [Concomitant]
  3. TOREM [Concomitant]
  4. LASIX [Concomitant]

REACTIONS (2)
  - Thrombocytopenia [None]
  - Cerebrovascular accident [None]
